FAERS Safety Report 10196013 (Version 1)
Quarter: 2014Q2

REPORT INFORMATION
  Report Type: Spontaneous
  Country: GB (occurrence: None)
  Receive Date: 20140522
  Receipt Date: 20140522
  Transmission Date: 20141212
  Serious: Yes (Hospitalization)
  Sender: FDA-Public Use
  Company Number: 2341776

PATIENT
  Age: 14 Year
  Sex: Female
  Weight: 60 kg

DRUGS (3)
  1. MIDAZOLAM [Suspect]
     Indication: SEDATION
     Route: 041
  2. BENZOCAINE [Concomitant]
  3. ARTICAINE W/EPINEPHRINE [Concomitant]

REACTIONS (10)
  - Agitation [None]
  - Tearfulness [None]
  - Unresponsive to stimuli [None]
  - Unresponsive to stimuli [None]
  - Delayed recovery from anaesthesia [None]
  - Oxygen saturation decreased [None]
  - Vomiting [None]
  - Nausea [None]
  - Headache [None]
  - Vision blurred [None]
